FAERS Safety Report 4778163-8 (Version None)
Quarter: 2005Q3

REPORT INFORMATION
  Report Type: 
  Country: None (occurrence: None)
  Receive Date: 20050923
  Receipt Date: 20050923
  Transmission Date: 20060218
  Serious: Yes (Other)
  Sender: FDA-Public Use
  Company Number: None

PATIENT
  Age: 50 Year
  Sex: Male
  Weight: 101.6 kg

DRUGS (5)
  1. SIMVASTATIN [Suspect]
  2. LORATADINE [Concomitant]
  3. SIMVASTATIN [Concomitant]
  4. FLUNISOLIDE [Concomitant]
  5. SILDENAFIL CITRATE [Concomitant]

REACTIONS (1)
  - BLOOD CREATINE PHOSPHOKINASE INCREASED [None]
